FAERS Safety Report 17691086 (Version 1)
Quarter: 2020Q2

REPORT INFORMATION
  Report Type: Spontaneous
  Country: CN (occurrence: CN)
  Receive Date: 20200422
  Receipt Date: 20200422
  Transmission Date: 20200714
  Serious: Yes (Hospitalization)
  Sender: FDA-Public Use
  Company Number: CN-BAXTER-2020BAX008357

PATIENT
  Age: 13 Year
  Sex: Male
  Weight: 55 kg

DRUGS (30)
  1. SODIUM CHLORIDE. [Suspect]
     Active Substance: SODIUM CHLORIDE
     Route: 041
     Dates: start: 20200402, end: 20200402
  2. SODIUM CHLORIDE. [Suspect]
     Active Substance: SODIUM CHLORIDE
     Route: 041
     Dates: start: 20200403, end: 20200403
  3. CASPOFUNGIN ACETATE. [Suspect]
     Active Substance: CASPOFUNGIN ACETATE
     Indication: PNEUMONIA
     Route: 041
     Dates: start: 20200405, end: 20200408
  4. HYDROPREDNISONE [Suspect]
     Active Substance: PREDNISOLONE
     Indication: ACUTE LEUKAEMIA
     Dosage: VDCLP CHEMOTHERAPY
     Route: 041
     Dates: start: 20200402, end: 20200402
  5. TYLENOL [Suspect]
     Active Substance: ACETAMINOPHEN
     Indication: PYREXIA
     Dosage: SUSTAINED-RELEASE TABLET
     Route: 048
     Dates: start: 20200331, end: 20200331
  6. SODIUM CHLORIDE. [Suspect]
     Active Substance: SODIUM CHLORIDE
     Route: 041
     Dates: start: 20200404, end: 20200408
  7. SODIUM BICARBONATE. [Suspect]
     Active Substance: SODIUM BICARBONATE
     Indication: PROPHYLAXIS
     Route: 041
     Dates: start: 20200403, end: 20200403
  8. SODIUM CHLORIDE. [Suspect]
     Active Substance: SODIUM CHLORIDE
     Dosage: MEROPENEM 1 G + SODIUM CHLORIDE 100 ML
     Route: 041
     Dates: start: 20200404, end: 20200408
  9. MEROPENEM. [Suspect]
     Active Substance: MEROPENEM
     Indication: PNEUMONIA
     Dosage: MEROPENEM 1 G + SODIUM CHLORIDE 100 ML
     Route: 041
     Dates: start: 20200404, end: 20200408
  10. VITAMIN C [Suspect]
     Active Substance: ASCORBIC ACID
     Indication: VITAMIN SUPPLEMENTATION
     Route: 041
     Dates: start: 20200331, end: 20200405
  11. SODIUM CHLORIDE. [Suspect]
     Active Substance: SODIUM CHLORIDE
     Dosage: KANGLINENG 2 G + SODIUM CHLORIDE 250 ML
     Route: 041
     Dates: start: 20200401, end: 20200403
  12. STERILE WATER [Suspect]
     Active Substance: WATER
     Indication: MEDICATION DILUTION
     Dosage: SU LING 2 IU + STERILE WATER 2 ML
     Route: 042
     Dates: start: 20200402, end: 20200405
  13. OUBEI [Suspect]
     Active Substance: ONDANSETRON HYDROCHLORIDE
     Indication: PROPHYLAXIS
     Route: 042
     Dates: start: 20200402, end: 20200403
  14. L-ASPARAGINASE [Suspect]
     Active Substance: ASPARAGINASE
     Indication: ACUTE LEUKAEMIA
     Dosage: VDCLP CHEMOTHERAPY
     Route: 065
     Dates: start: 20200402
  15. INDOMETHACIN. [Suspect]
     Active Substance: INDOMETHACIN
     Indication: PYREXIA
     Route: 054
     Dates: start: 20200401, end: 20200403
  16. FUROSEMIDE. [Suspect]
     Active Substance: FUROSEMIDE
     Indication: POLYURIA
     Route: 042
     Dates: start: 20200403, end: 20200403
  17. SODIUM CHLORIDE. [Suspect]
     Active Substance: SODIUM CHLORIDE
     Indication: MEDICATION DILUTION
     Route: 041
     Dates: start: 20200331, end: 20200405
  18. SU LING (HAEMOCOAGULASE AGKISTRODON) [Suspect]
     Active Substance: BATROXOBIN
     Indication: HAEMOSTASIS
     Dosage: SU LING 2 IU + STERILE WATER 2 ML
     Route: 042
     Dates: start: 20200402, end: 20200405
  19. WEI DI [Suspect]
     Active Substance: PANTOPRAZOLE SODIUM
     Indication: PROPHYLAXIS
     Route: 041
     Dates: start: 20200331, end: 20200405
  20. ENDOXAN [Suspect]
     Active Substance: CYCLOPHOSPHAMIDE
     Indication: ACUTE LEUKAEMIA
     Dosage: VDCLP CHEMOTHERAPY
     Route: 041
     Dates: start: 20200403, end: 20200403
  21. VINCRISTINE [Suspect]
     Active Substance: VINCRISTINE
     Indication: ACUTE LEUKAEMIA
     Dosage: VDCLP CHEMOTHERAPY
     Route: 065
     Dates: start: 20200402
  22. DAUNORUBICIN [Suspect]
     Active Substance: DAUNORUBICIN
     Indication: ACUTE LEUKAEMIA
     Dosage: VDCLP CHEMOTHERAPY
     Route: 065
     Dates: start: 20200402
  23. VINORELBINE TARTRATE. [Suspect]
     Active Substance: VINORELBINE TARTRATE
     Indication: ACUTE LEUKAEMIA
     Route: 041
     Dates: start: 20200402, end: 20200402
  24. SODIUM CHLORIDE. [Suspect]
     Active Substance: SODIUM CHLORIDE
     Route: 041
     Dates: start: 20200331, end: 20200405
  25. CASPOFUNGIN ACETATE. [Suspect]
     Active Substance: CASPOFUNGIN ACETATE
     Indication: PNEUMONIA
     Route: 041
     Dates: start: 20200404, end: 20200404
  26. AMINOCAPROIC ACID. [Suspect]
     Active Substance: AMINOCAPROIC ACID
     Indication: HAEMOSTASIS
     Route: 041
     Dates: start: 20200331, end: 20200405
  27. VITAMIN B6 [Suspect]
     Active Substance: PYRIDOXINE HYDROCHLORIDE
     Indication: VITAMIN SUPPLEMENTATION
     Route: 041
     Dates: start: 20200331, end: 20200405
  28. GLUCOSE [Suspect]
     Active Substance: DEXTROSE
     Indication: MEDICATION DILUTION
     Route: 041
     Dates: start: 20200331, end: 20200405
  29. KANGLINENG [Suspect]
     Active Substance: CEFODIZIME SODIUM
     Indication: PNEUMONIA
     Dosage: KANGLINENG 2 G + SODIUM CHLORIDE 250 ML
     Route: 041
     Dates: start: 20200401, end: 20200403
  30. GLUCOSE [Suspect]
     Active Substance: DEXTROSE
     Route: 041
     Dates: start: 20200402, end: 20200402

REACTIONS (8)
  - Oedema peripheral [Unknown]
  - Decreased appetite [Unknown]
  - Face oedema [Unknown]
  - Vomiting [Unknown]
  - Productive cough [Unknown]
  - Nausea [Unknown]
  - Liver disorder [Recovering/Resolving]
  - Pyrexia [Unknown]

NARRATIVE: CASE EVENT DATE: 20200404
